FAERS Safety Report 13189652 (Version 1)
Quarter: 2017Q1

REPORT INFORMATION
  Report Type: Spontaneous
  Country: US (occurrence: US)
  Receive Date: 20170206
  Receipt Date: 20170206
  Transmission Date: 20170428
  Serious: Yes (Other)
  Sender: FDA-Public Use
  Company Number: US-BAYER-2017-016270

PATIENT
  Sex: Female

DRUGS (1)
  1. MIRENA [Suspect]
     Active Substance: LEVONORGESTREL
     Dosage: 20 MCG/24HR, CONT
     Route: 015
     Dates: end: 20170126

REACTIONS (9)
  - Blindness transient [None]
  - Neuralgia [None]
  - Genital haemorrhage [Not Recovered/Not Resolved]
  - Abdominal pain upper [Not Recovered/Not Resolved]
  - Muscle tightness [None]
  - Abasia [None]
  - Abdominal pain lower [None]
  - Headache [None]
  - Gastritis [Not Recovered/Not Resolved]

NARRATIVE: CASE EVENT DATE: 201701
